FAERS Safety Report 6529997-0 (Version None)
Quarter: 2010Q1

REPORT INFORMATION
  Report Type: 
  Country: None (occurrence: None)
  Receive Date: 20100107
  Receipt Date: 20091230
  Transmission Date: 20100710
  Serious: No
  Sender: FDA-Public Use
  Company Number: US-SOLVAY-00209007046

PATIENT
  Age: 646 Month
  Sex: Female
  Weight: 38.636 kg

DRUGS (2)
  1. VIVELLE-DOT [Concomitant]
     Indication: HORMONE REPLACEMENT THERAPY
     Dosage: DAILY DOSE:  UNKNOWN, AS USED: 0.075 MILLIGRAM, FREQUENCY: TWICE A WEEK, ROUTE: TRANSDERMAL
     Route: 050
  2. ANDROGEL [Suspect]
     Indication: ACCIDENTAL EXPOSURE
     Dosage: DAILY DOSE: 2.5 GRAM(S)
     Route: 062
     Dates: start: 20071201, end: 20090701

REACTIONS (1)
  - HIRSUTISM [None]
